FAERS Safety Report 8609500-1 (Version None)
Quarter: 2012Q3

REPORT INFORMATION
  Report Type: 
  Country: None (occurrence: None)
  Receive Date: 20120821
  Receipt Date: 20120813
  Transmission Date: 20120928
  Serious: Yes (Hospitalization)
  Sender: FDA-Public Use
  Company Number: US-ABBOTT-12P-163-0968480-00

PATIENT
  Sex: Female

DRUGS (2)
  1. HUMIRA [Suspect]
     Indication: RHEUMATOID ARTHRITIS
     Route: 058
     Dates: start: 20100801
  2. FENTANYL [Concomitant]
     Indication: PRODUCT USED FOR UNKNOWN INDICATION
     Dosage: 25MCG/HR PATCH

REACTIONS (5)
  - PNEUMONIA [None]
  - PULMONARY OEDEMA [None]
  - UPPER RESPIRATORY TRACT INFECTION [None]
  - LOWER RESPIRATORY TRACT INFLAMMATION [None]
  - URINARY TRACT INFECTION [None]
